FAERS Safety Report 10969889 (Version 1)
Quarter: 2015Q1

REPORT INFORMATION
  Report Type: Spontaneous
  Country: US (occurrence: US)
  Receive Date: 20150331
  Receipt Date: 20150331
  Transmission Date: 20150721
  Serious: No
  Sender: FDA-Public Use
  Company Number: US-PFIZER INC-2015108699

PATIENT
  Age: 76 Year
  Sex: Female
  Weight: 82 kg

DRUGS (6)
  1. METOPROLOL [Concomitant]
     Active Substance: METOPROLOL
     Dosage: 50 MG, 1X/DAY
  2. ENABLEX [Concomitant]
     Active Substance: DARIFENACIN\DARIFENACIN HYDROBROMIDE
     Indication: RENAL DISORDER
     Dosage: 15 MG, 1X/DAY (AT BEDTIME)
  3. XANAX [Suspect]
     Active Substance: ALPRAZOLAM
     Indication: ANXIETY
     Dosage: 0.5 MG, DAILY (HALF OF A PILL)
  4. ALPRAZOLAM. [Suspect]
     Active Substance: ALPRAZOLAM
     Indication: ANXIETY
     Dosage: UNK
  5. LISINOPRIL. [Concomitant]
     Active Substance: LISINOPRIL
     Dosage: 10 MG, 1X/DAY (IN THE EVENING)
  6. FENTANYL. [Concomitant]
     Active Substance: FENTANYL
     Dosage: UNK

REACTIONS (7)
  - Feeling abnormal [Unknown]
  - Feeling cold [Unknown]
  - Fear [Unknown]
  - Malaise [Unknown]
  - Weight decreased [Unknown]
  - Drug hypersensitivity [Unknown]
  - Condition aggravated [Unknown]
